FAERS Safety Report 21349691 (Version 1)
Quarter: 2022Q3

REPORT INFORMATION
  Report Type: Spontaneous
  Country: US (occurrence: None)
  Receive Date: 20220917
  Receipt Date: 20220917
  Transmission Date: 20221027
  Serious: Yes (Hospitalization)
  Sender: FDA-Public Use
  Company Number: None

PATIENT
  Sex: Female

DRUGS (1)
  1. AUSTEDO [Suspect]
     Active Substance: DEUTETRABENAZINE
     Indication: Tardive dyskinesia
     Dosage: OTHER QUANTITY : 90 TABLET(S);?FREQUENCY : TWICE A DAY;?
     Dates: start: 20201201, end: 20220524

REACTIONS (1)
  - Restlessness [None]

NARRATIVE: CASE EVENT DATE: 20220524
